FAERS Safety Report 6017477-0 (Version None)
Quarter: 2008Q4

REPORT INFORMATION
  Report Type: 
  Country: None (occurrence: None)
  Receive Date: 20081223
  Receipt Date: 20081217
  Transmission Date: 20090506
  Serious: Yes (Hospitalization, Other)
  Sender: FDA-Public Use
  Company Number: DE-WYE-H07268308

PATIENT
  Sex: Male
  Weight: 105 kg

DRUGS (9)
  1. RAPAMUNE [Suspect]
     Indication: PROPHYLAXIS AGAINST TRANSPLANT REJECTION
     Route: 048
     Dates: start: 19600625
  2. DECORTIN-H [Concomitant]
     Indication: IMMUNOSUPPRESSANT DRUG THERAPY
     Dosage: 2.5 MG
     Route: 048
  3. URSO FALK [Concomitant]
     Indication: CHOLESTASIS
     Dosage: 3 X 500 MG
     Route: 048
  4. COZAAR [Concomitant]
     Indication: HYPERTENSION
     Dosage: 50 MG
     Route: 048
  5. PANTOZOL [Concomitant]
     Indication: PEPTIC ULCER
     Dosage: 40 MG
     Route: 048
  6. COLECALCIFEROL [Concomitant]
     Indication: OSTEOPOROSIS
     Dosage: UNSPECIFIED
     Route: 048
  7. BISOPROLOL FUMARATE [Concomitant]
     Indication: HYPERTENSION
     Dosage: 5 MG
     Route: 048
  8. CYCLOSPORINE [Concomitant]
     Indication: IMMUNOSUPPRESSANT DRUG THERAPY
     Dosage: 2 X 70 MG
     Route: 048
  9. TORSEMIDE [Concomitant]
     Indication: RENAL FAILURE
     Dosage: 5 MG
     Route: 048

REACTIONS (1)
  - HEPATIC NEOPLASM MALIGNANT RECURRENT [None]
